FAERS Safety Report 4404536-9 (Version None)
Quarter: 2004Q3

REPORT INFORMATION
  Report Type: 
  Country: None (occurrence: None)
  Receive Date: 20040721
  Receipt Date: 20040721
  Transmission Date: 20050211
  Serious: Yes (Hospitalization)
  Sender: FDA-Public Use
  Company Number: None

PATIENT
  Age: 55 Year
  Sex: Male

DRUGS (1)
  1. CISPLATIN [Suspect]

REACTIONS (3)
  - ANAEMIA [None]
  - LEUKOPENIA [None]
  - RENAL FAILURE ACUTE [None]
